FAERS Safety Report 7639271 (Version 2)
Quarter: 2014Q2

REPORT INFORMATION
  Report Type: Spontaneous
  Country: JP (occurrence: JP)
  Receive Date: 20101025
  Receipt Date: 20140425
  Transmission Date: 20141212
  Serious: Yes (Death, Hospitalization, Other)
  Sender: FDA-Public Use
  Company Number: JP-MEDIMMUNE-MEDI-0011648

PATIENT
  Age: 9 Month
  Sex: Male
  Weight: 7 kg

DRUGS (2)
  1. SYNAGIS [Suspect]
     Indication: ANTIVIRAL PROPHYLAXIS
     Route: 030
     Dates: start: 20090908, end: 20100105
  2. CARTEOLOL HYDROCHLORIDE [Concomitant]
     Indication: ANOXIA
     Dosage: 1.8-2.0 MG
     Route: 048
     Dates: start: 20090818, end: 20100202

REACTIONS (9)
  - Cardiac arrest [Fatal]
  - Anoxia [Fatal]
  - Crying [Fatal]
  - Oxygen saturation decreased [Fatal]
  - Heart rate decreased [Fatal]
  - Rhinorrhoea [Not Recovered/Not Resolved]
  - Feeding disorder neonatal [Unknown]
  - Respiratory syncytial virus bronchiolitis [Recovering/Resolving]
  - Respiratory syncytial virus infection [Unknown]
